FAERS Safety Report 4587223-6 (Version None)
Quarter: 2005Q1

REPORT INFORMATION
  Report Type: 
  Country: None (occurrence: None)
  Receive Date: 20050218
  Receipt Date: 20050210
  Transmission Date: 20050727
  Serious: Yes (Other)
  Sender: FDA-Public Use
  Company Number: US-GLAXOSMITHKLINE-A0546008A

PATIENT
  Sex: Male

DRUGS (1)
  1. LAMICTAL [Suspect]
     Indication: PARTIAL SEIZURES

REACTIONS (3)
  - BLOOD TEST ABNORMAL [None]
  - MYELODYSPLASTIC SYNDROME [None]
  - REFRACTORY ANAEMIA WITH AN EXCESS OF BLASTS [None]
